FAERS Safety Report 9130840 (Version 2)
Quarter: 2013Q1

REPORT INFORMATION
  Report Type: Spontaneous
  Country: BR (occurrence: BR)
  Receive Date: 20130301
  Receipt Date: 20130311
  Transmission Date: 20140127
  Serious: Yes (Death, Hospitalization, Other)
  Sender: FDA-Public Use
  Company Number: BR-PFIZER INC-2013072100

PATIENT
  Age: 62 Year
  Sex: Male

DRUGS (2)
  1. LIPITOR [Suspect]
     Indication: BLOOD CHOLESTEROL ABNORMAL
     Dosage: 20 MG, 1X/DAY
     Route: 048
     Dates: start: 20110110
  2. LIPITOR [Suspect]
     Dosage: UNK
     Dates: start: 2008

REACTIONS (7)
  - Multi-organ failure [Fatal]
  - Pulmonary embolism [Fatal]
  - Angiopathy [Fatal]
  - Cardiac disorder [Unknown]
  - Lung disorder [Unknown]
  - Cerebrovascular disorder [Unknown]
  - Respiratory failure [Unknown]
